FAERS Safety Report 21307762 (Version 2)
Quarter: 2024Q4

REPORT INFORMATION
  Report Type: Report from Study
  Country: US (occurrence: US)
  Receive Date: 20220908
  Receipt Date: 20241002
  Transmission Date: 20250115
  Serious: Yes (Hospitalization)
  Sender: PAREXEL
  Company Number: US-AVEO ONCOLOGY-2022-AVEO-US000396

PATIENT

DRUGS (22)
  1. FOTIVDA [Suspect]
     Active Substance: TIVOZANIB HYDROCHLORIDE
     Indication: Renal cell carcinoma
     Dosage: 1.34 MG, DAILY FOR 21 DAYS WITH 7 DAYS OFF (28-DAY CYCLE)
     Route: 048
     Dates: start: 20220627
  2. TYLENOL WITH CODEINE [Concomitant]
     Active Substance: ACETAMINOPHEN\CODEINE PHOSPHATE
  3. ASPIRIN [Concomitant]
     Active Substance: ASPIRIN
  4. CALCITRIOL [Concomitant]
     Active Substance: CALCITRIOL
  5. CETIRIZINE [Concomitant]
     Active Substance: CETIRIZINE HYDROCHLORIDE
  6. CLONIDINE [Concomitant]
     Active Substance: CLONIDINE
  7. DICLOFENAC SODIUM [Concomitant]
     Active Substance: DICLOFENAC SODIUM
  8. DILTIAZEM [Concomitant]
     Active Substance: DILTIAZEM
  9. ERGOCALCIFEROL [Concomitant]
     Active Substance: ERGOCALCIFEROL
  10. FEBUXOSTAT [Concomitant]
     Active Substance: FEBUXOSTAT
  11. FERROUS SULFATE [Concomitant]
     Active Substance: FERROUS SULFATE
  12. GARLIC OIL [Concomitant]
     Active Substance: GARLIC OIL
  13. HUMALOG [Concomitant]
     Active Substance: INSULIN LISPRO
  14. HYDRALAZINE [Concomitant]
     Active Substance: HYDRALAZINE HYDROCHLORIDE
  15. NORCO [Concomitant]
     Active Substance: ACETAMINOPHEN\HYDROCODONE BITARTRATE
  16. BISACODYL [Concomitant]
     Active Substance: BISACODYL
  17. PENTOXIFYLLINE [Concomitant]
     Active Substance: PENTOXIFYLLINE
  18. SODIUM BICARBONATE [Concomitant]
     Active Substance: SODIUM BICARBONATE
  19. LEVOTHYROXINE [Concomitant]
     Active Substance: LEVOTHYROXINE
  20. METOLAZONE [Concomitant]
     Active Substance: METOLAZONE
  21. PRAVASTATIN [Concomitant]
     Active Substance: PRAVASTATIN
  22. ZOLPIDEM [Concomitant]
     Active Substance: ZOLPIDEM TARTRATE

REACTIONS (2)
  - Renal failure [Unknown]
  - Palmar-plantar erythrodysaesthesia syndrome [Unknown]

NARRATIVE: CASE EVENT DATE: 20220829
